FAERS Safety Report 9448377 (Version 2)
Quarter: 2013Q4

REPORT INFORMATION
  Report Type: Spontaneous
  Country: FR (occurrence: FR)
  Receive Date: 20130808
  Receipt Date: 20131018
  Transmission Date: 20140711
  Serious: Yes (Other)
  Sender: FDA-Public Use
  Company Number: FR-MERCK-1308FRA000282

PATIENT
  Age: 46 Year
  Sex: Male

DRUGS (7)
  1. ISENTRESS [Suspect]
     Indication: HIV INFECTION
     Dosage: UNK
     Route: 048
     Dates: start: 20130613
  2. INTELENCE [Suspect]
     Indication: HIV INFECTION
     Dosage: UNK
     Route: 048
     Dates: start: 20130613
  3. NORVIR [Suspect]
     Indication: HIV INFECTION
     Dosage: UNK
     Dates: start: 20130613
  4. PREZISTA [Suspect]
     Indication: HIV INFECTION
     Dosage: UNK
     Route: 048
     Dates: start: 20130613
  5. PENTACARINAT [Suspect]
     Indication: PROPHYLAXIS
     Dosage: UNK
     Dates: start: 20130618
  6. PENTACARINAT [Suspect]
     Indication: ANTIFUNGAL PROPHYLAXIS
  7. PROZAC [Suspect]
     Indication: DEPRESSION
     Dosage: 1 DF, QD
     Route: 048
     Dates: start: 201306

REACTIONS (1)
  - Hepatocellular injury [Recovered/Resolved]
